FAERS Safety Report 19733012 (Version 1)
Quarter: 2021Q3

REPORT INFORMATION
  Report Type: Spontaneous
  Country: US (occurrence: US)
  Receive Date: 20210822
  Receipt Date: 20210822
  Transmission Date: 20211014
  Serious: Yes (Other)
  Sender: FDA-Public Use
  Company Number: None

PATIENT
  Sex: Male

DRUGS (1)
  1. TRIAMCINOLONE CREAM [Suspect]
     Active Substance: TRIAMCINOLONE
     Indication: ECZEMA

REACTIONS (7)
  - Impaired quality of life [None]
  - Skin weeping [None]
  - Skin exfoliation [None]
  - Pruritus [None]
  - Insomnia [None]
  - Rash [None]
  - Erythema [None]

NARRATIVE: CASE EVENT DATE: 20210610
